FAERS Safety Report 8342831-1 (Version None)
Quarter: 2012Q2

REPORT INFORMATION
  Report Type: 
  Country: None (occurrence: None)
  Receive Date: 20120503
  Receipt Date: 20111208
  Transmission Date: 20120825
  Serious: Yes (Hospitalization)
  Sender: FDA-Public Use
  Company Number: PL-024840

PATIENT
  Age: 69 Year
  Sex: Female

DRUGS (1)
  1. (CHLORAMBUCIL) [Suspect]
     Indication: CHRONIC LYMPHOCYTIC LEUKAEMIA
     Dosage: TABLET 10MG/M2 ORAL
     Route: 048
     Dates: start: 20100525

REACTIONS (1)
  - OVARIAN CYST [None]
